FAERS Safety Report 8191846-5 (Version None)
Quarter: 2012Q1

REPORT INFORMATION
  Report Type: 
  Country: None (occurrence: None)
  Receive Date: 20120307
  Receipt Date: 20120228
  Transmission Date: 20120608
  Serious: Yes (Other)
  Sender: FDA-Public Use
  Company Number: PHEH2012US004796

PATIENT

DRUGS (1)
  1. TEGRETOL [Suspect]
     Dosage: 200 MG, UNK
     Dates: start: 20120213

REACTIONS (4)
  - CONVULSION [None]
  - MULTIPLE INJURIES [None]
  - INSOMNIA [None]
  - DECREASED APPETITE [None]
